FAERS Safety Report 9928519 (Version 1)
Quarter: 2014Q1

REPORT INFORMATION
  Report Type: Spontaneous
  Country: US (occurrence: None)
  Receive Date: 20140226
  Receipt Date: 20140226
  Transmission Date: 20141002
  Serious: No
  Sender: FDA-Public Use
  Company Number: None

PATIENT
  Age: 6 Year
  Sex: Male
  Weight: 25.5 kg

DRUGS (2)
  1. MERCAPTOPURINE [Suspect]
  2. METHOTREXATE [Suspect]

REACTIONS (10)
  - Pyrexia [None]
  - Fatigue [None]
  - Rhinorrhoea [None]
  - Diarrhoea [None]
  - Faeces discoloured [None]
  - Hepatitis viral [None]
  - Liver injury [None]
  - Vomiting [None]
  - White blood cell count decreased [None]
  - Unevaluable event [None]
